FAERS Safety Report 8289518-1 (Version None)
Quarter: 2012Q2

REPORT INFORMATION
  Report Type: 
  Country: None (occurrence: None)
  Receive Date: 20120417
  Receipt Date: 20120411
  Transmission Date: 20120825
  Serious: Yes (Other)
  Sender: FDA-Public Use
  Company Number: US-PFIZER INC-2012091149

PATIENT
  Sex: Female
  Weight: 88 kg

DRUGS (8)
  1. REVATIO [Suspect]
     Indication: SCLERODERMA
     Dosage: 30 MG, 3X/DAY
     Dates: start: 20120222, end: 20120326
  2. REVATIO [Suspect]
     Indication: CYANOSIS
  3. REVATIO [Suspect]
     Indication: CREST SYNDROME
  4. GABAPENTIN [Suspect]
     Indication: NEURALGIA
     Dosage: 300 MG,DAILY
     Dates: start: 20120216
  5. PLAQUENIL [Suspect]
     Indication: SCLERODERMA
     Dosage: 200 MG, 2X/DAY
     Dates: start: 20120308, end: 20120327
  6. PLAQUENIL [Suspect]
     Indication: AUTOIMMUNE DISORDER
     Dosage: UNK
     Dates: start: 20120408
  7. PROTONIX [Concomitant]
     Indication: HYPERCHLORHYDRIA
     Dosage: 40 MG,DAILY
  8. XANAX [Concomitant]
     Indication: ANXIETY
     Dosage: 0.5 MG, 2X/DAY

REACTIONS (7)
  - OESOPHAGEAL SPASM [None]
  - OXYGEN SATURATION DECREASED [None]
  - NAUSEA [None]
  - BLOOD COUNT ABNORMAL [None]
  - OEDEMA PERIPHERAL [None]
  - LARYNGOSPASM [None]
  - DYSPHAGIA [None]
